FAERS Safety Report 22605197 (Version 1)
Quarter: 2023Q2

REPORT INFORMATION
  Report Type: Spontaneous
  Country: JP (occurrence: JP)
  Receive Date: 20230615
  Receipt Date: 20230615
  Transmission Date: 20230721
  Serious: Yes (Hospitalization)
  Sender: FDA-Public Use
  Company Number: JP-ELI_LILLY_AND_COMPANY-JP202306005375

PATIENT
  Age: 68 Year
  Sex: Male
  Weight: 53.4 kg

DRUGS (4)
  1. INSULIN LISPRO [Suspect]
     Active Substance: INSULIN LISPRO
     Indication: Pancreatogenous diabetes
     Dosage: 10U-8U-12U
     Route: 058
  2. INSULIN LISPRO [Suspect]
     Active Substance: INSULIN LISPRO
     Dosage: 14U-6U-3U
     Route: 058
  3. INSULIN GLARGINE [Suspect]
     Active Substance: INSULIN GLARGINE
     Indication: Pancreatogenous diabetes
     Dosage: 4 INTERNATIONAL UNIT, DAILY
     Route: 058
  4. INSULIN GLARGINE [Suspect]
     Active Substance: INSULIN GLARGINE
     Dosage: 7 INTERNATIONAL UNIT, EACH MORNING
     Route: 058

REACTIONS (3)
  - Hyperglycaemia [Recovered/Resolved]
  - Hypoglycaemia [Recovered/Resolved]
  - Blood glucose decreased [Recovered/Resolved]
